FAERS Safety Report 12741240 (Version 1)
Quarter: 2016Q3

REPORT INFORMATION
  Report Type: Spontaneous
  Country: GB (occurrence: GB)
  Receive Date: 20160914
  Receipt Date: 20160914
  Transmission Date: 20161109
  Serious: Yes (Hospitalization)
  Sender: FDA-Public Use
  Company Number: GB-ACCORD-043878

PATIENT
  Age: 46 Year
  Sex: Female

DRUGS (5)
  1. METFORMIN [Concomitant]
     Active Substance: METFORMIN HYDROCHLORIDE
     Dosage: 1 GRAM  IN THE MORNING, 500 MILLIGRAMS AT TEATIME.
  2. ATORVASTATIN/ATORVASTATIN CALCIUM [Suspect]
     Active Substance: ATORVASTATIN CALCIUM
     Indication: PRODUCT USED FOR UNKNOWN INDICATION
     Dosage: AT NIGHT, INTRODUCED IN LAST COUPLE OF MONTHS
  3. AMITRIPTYLINE [Suspect]
     Active Substance: AMITRIPTYLINE
     Indication: PRODUCT USED FOR UNKNOWN INDICATION
     Dosage: AT NIGHT, INTRODUCED IN LAST COUPLE OF MONTHS
  4. FLUCLOXACILLIN [Concomitant]
     Active Substance: FLUCLOXACILLIN
     Dosage: MULTIPLE COURSES
  5. GLICLAZIDE [Concomitant]
     Active Substance: GLICLAZIDE
     Dosage: ONE TO BE TAKEN TWICE DAILY -PATIENT TAKES EVERY MORNING

REACTIONS (3)
  - Pruritus [Unknown]
  - Abnormal loss of weight [Unknown]
  - Pemphigoid [Recovering/Resolving]
